FAERS Safety Report 4264424-8 (Version None)
Quarter: 2004Q1

REPORT INFORMATION
  Report Type: 
  Country: None (occurrence: None)
  Receive Date: 20040106
  Receipt Date: 20031211
  Transmission Date: 20041129
  Serious: Yes (Hospitalization)
  Sender: FDA-Public Use
  Company Number: US-GLAXOSMITHKLINE-A0442804A

PATIENT
  Age: 37 Year
  Sex: Female

DRUGS (4)
  1. LOTRONEX [Suspect]
     Indication: IRRITABLE BOWEL SYNDROME
     Dosage: 1MG PER DAY
     Route: 048
     Dates: start: 20031112, end: 20031202
  2. NEXIUM [Concomitant]
  3. PROZAC [Concomitant]
  4. ALLEGRA [Concomitant]

REACTIONS (1)
  - LOWER GASTROINTESTINAL HAEMORRHAGE [None]
